FAERS Safety Report 11133526 (Version 1)
Quarter: 2015Q2

REPORT INFORMATION
  Report Type: Spontaneous
  Country: US (occurrence: US)
  Receive Date: 20150523
  Receipt Date: 20150523
  Transmission Date: 20150821
  Serious: Yes (Hospitalization)
  Sender: FDA-Public Use
  Company Number: US-GLENMARK PHARMACEUTICALS EUROPE LIMITED-2015GMK014911

PATIENT
  Age: 49 Year
  Sex: Female

DRUGS (10)
  1. GABAPENTIN. [Suspect]
     Active Substance: GABAPENTIN
     Indication: PAIN IN EXTREMITY
  2. BACLOFEN. [Suspect]
     Active Substance: BACLOFEN
     Indication: MUSCLE SPASMS
     Dosage: UNK
  3. OPIOIDS [Suspect]
     Active Substance: UNSPECIFIED INGREDIENT
     Indication: MUSCLE SPASMS
     Route: 048
  4. TIZANIDINE (TIZANIDINE) [Suspect]
     Active Substance: TIZANIDINE
     Indication: PAIN IN EXTREMITY
  5. BENZODIAZEPINE DERIVATIVES [Suspect]
     Active Substance: BENZODIAZEPINE
     Indication: PAIN IN EXTREMITY
     Dosage: UNK
     Route: 042
  6. OPIOIDS [Suspect]
     Active Substance: UNSPECIFIED INGREDIENT
     Indication: PAIN IN EXTREMITY
     Dosage: UNK
     Route: 042
  7. GABAPENTIN. [Suspect]
     Active Substance: GABAPENTIN
     Indication: MUSCLE SPASMS
     Dosage: UNK
  8. TIZANIDINE (TIZANIDINE) [Suspect]
     Active Substance: TIZANIDINE
     Indication: MUSCLE SPASMS
     Dosage: UNK
  9. BENZODIAZEPINE DERIVATIVES [Suspect]
     Active Substance: BENZODIAZEPINE
     Indication: MUSCLE SPASMS
     Dosage: UNK
     Route: 048
  10. BACLOFEN. [Suspect]
     Active Substance: BACLOFEN
     Indication: PAIN IN EXTREMITY

REACTIONS (2)
  - Haemodynamic instability [Recovered/Resolved]
  - Drug ineffective for unapproved indication [Unknown]
